FAERS Safety Report 12171521 (Version 2)
Quarter: 2016Q1

REPORT INFORMATION
  Report Type: Spontaneous
  Country: US (occurrence: US)
  Receive Date: 20160311
  Receipt Date: 20160322
  Transmission Date: 20160526
  Serious: Yes (Hospitalization)
  Sender: FDA-Public Use
  Company Number: US-JNJFOC-20160212775

PATIENT
  Age: 26 Year
  Sex: Male
  Weight: 80.29 kg

DRUGS (2)
  1. SIMPONI [Suspect]
     Active Substance: GOLIMUMAB
     Indication: COLITIS ULCERATIVE
     Route: 058
     Dates: start: 20151030, end: 20160224
  2. MERCAPTOPURINE. [Concomitant]
     Active Substance: MERCAPTOPURINE
     Route: 065
     Dates: end: 20160224

REACTIONS (4)
  - Haematochezia [Unknown]
  - Colectomy total [Unknown]
  - Drug ineffective [Unknown]
  - Abdominal pain [Unknown]

NARRATIVE: CASE EVENT DATE: 20160223
